FAERS Safety Report 6836274-7 (Version None)
Quarter: 2010Q3

REPORT INFORMATION
  Report Type: 
  Country: None (occurrence: None)
  Receive Date: 20100713
  Receipt Date: 20091202
  Transmission Date: 20110219
  Serious: No
  Sender: FDA-Public Use
  Company Number: US-TYCO HEALTHCARE/MALLINCKRODT-T200902290

PATIENT
  Sex: Female
  Weight: 47.619 kg

DRUGS (4)
  1. OXYCODONE HCL [Suspect]
     Indication: PAIN
     Dosage: 4 TABS PER DAY
     Route: 048
  2. MOBIC [Concomitant]
     Dosage: 1 QD
     Route: 048
  3. ANTIDEPRESSANTS [Concomitant]
     Dosage: QD
     Route: 048
  4. GABAPENTIN [Concomitant]
     Dosage: UNK
     Route: 048
     Dates: end: 20090101

REACTIONS (2)
  - DRUG INEFFECTIVE [None]
  - WRONG TECHNIQUE IN DRUG USAGE PROCESS [None]
